FAERS Safety Report 12598803 (Version 5)
Quarter: 2016Q4

REPORT INFORMATION
  Report Type: Spontaneous
  Country: JP (occurrence: JP)
  Receive Date: 20160726
  Receipt Date: 20161028
  Transmission Date: 20170207
  Serious: Yes (Other)
  Sender: FDA-Public Use
  Company Number: PHJP2016JP021169

PATIENT
  Age: 2 Year
  Sex: Male

DRUGS (1)
  1. NEORAL [Suspect]
     Active Substance: CYCLOSPORINE
     Indication: APLASTIC ANAEMIA
     Dosage: 12 MG, UNK
     Route: 048

REACTIONS (2)
  - Product use issue [Unknown]
  - Hyperphosphatasaemia [Recovered/Resolved]

NARRATIVE: CASE EVENT DATE: 20140105
